FAERS Safety Report 5159415-9 (Version None)
Quarter: 2006Q4

REPORT INFORMATION
  Report Type: 
  Country: None (occurrence: None)
  Receive Date: 20061122
  Receipt Date: 20061122
  Transmission Date: 20070319
  Serious: Yes (Hospitalization)
  Sender: FDA-Public Use
  Company Number: None

PATIENT
  Age: 72 Year
  Sex: Male
  Weight: 72 kg

DRUGS (3)
  1. VANCOMYCIN [Suspect]
     Indication: CARDIAC FAILURE CONGESTIVE
     Dates: start: 20060804, end: 20060817
  2. VANCOMYCIN [Suspect]
     Indication: INFECTION
     Dates: start: 20060804, end: 20060817
  3. FUROSEMIDE [Suspect]
     Indication: OEDEMA
     Dates: start: 20060804, end: 20060817

REACTIONS (2)
  - RENAL FAILURE ACUTE [None]
  - RENAL TUBULAR NECROSIS [None]
